FAERS Safety Report 10075790 (Version 1)
Quarter: 2014Q2

REPORT INFORMATION
  Report Type: Spontaneous
  Country: AU (occurrence: AU)
  Receive Date: 20140414
  Receipt Date: 20140414
  Transmission Date: 20141212
  Serious: Yes (Death, Congenital Anomaly, Other)
  Sender: FDA-Public Use
  Company Number: AU-ELI_LILLY_AND_COMPANY-AU201404003414

PATIENT
  Age: 21 Day
  Sex: 0

DRUGS (10)
  1. HUMALOG LISPRO [Suspect]
     Indication: DIABETES MELLITUS
     Dosage: 62 U, QD
     Route: 064
  2. HUMALOG LISPRO [Suspect]
     Indication: DIABETES MELLITUS
     Dosage: 62 U, QD
     Route: 064
  3. HUMULIN NPH [Suspect]
     Indication: DIABETES MELLITUS
     Dosage: 1 DF, QD
     Route: 064
  4. HUMULIN NPH [Suspect]
     Indication: DIABETES MELLITUS
     Dosage: 1 DF, QD
     Route: 064
  5. HYDRALAZINE HYDROCHLORIDE [Suspect]
     Indication: ESSENTIAL HYPERTENSION
     Dosage: 75 MG, QD
     Route: 064
  6. HYDRALAZINE HYDROCHLORIDE [Suspect]
     Indication: ESSENTIAL HYPERTENSION
     Dosage: 75 MG, QD
     Route: 064
  7. OXPRENOLOL HYDROCHLORIDE [Suspect]
     Indication: ESSENTIAL HYPERTENSION
     Dosage: 240 MG, QD
     Route: 064
  8. OXPRENOLOL HYDROCHLORIDE [Suspect]
     Indication: ESSENTIAL HYPERTENSION
     Dosage: 240 MG, QD
     Route: 064
  9. THYROXINE SODIUM [Suspect]
     Indication: MYXOEDEMA
     Dosage: 300 MG, QD
     Route: 064
  10. THYROXINE SODIUM [Suspect]
     Indication: MYXOEDEMA
     Dosage: 300 MG, QD
     Route: 064

REACTIONS (6)
  - Death neonatal [Fatal]
  - Hernia congenital [Not Recovered/Not Resolved]
  - Gastrointestinal malformation [Not Recovered/Not Resolved]
  - Congenital genitourinary abnormality [Not Recovered/Not Resolved]
  - Testicular disorder [Not Recovered/Not Resolved]
  - Foetal exposure during pregnancy [Recovered/Resolved]
